FAERS Safety Report 5413425-2 (Version None)
Quarter: 2007Q3

REPORT INFORMATION
  Report Type: 
  Country: None (occurrence: None)
  Receive Date: 20070810
  Receipt Date: 20070810
  Transmission Date: 20080115
  Serious: Yes (Hospitalization)
  Sender: FDA-Public Use
  Company Number: None

PATIENT
  Age: 59 Year
  Sex: Female
  Weight: 61.6892 kg

DRUGS (12)
  1. CETUXIMAB; (RADIATION 7/9/07-8/3/07 M-F) [Suspect]
     Indication: PANCREATIC CARCINOMA
     Dosage: 400 MG/M2; 250 MG/M2
     Dates: start: 20070709, end: 20070730
  2. CETUXIMAB; (RADIATION 7/9/07-8/3/07 M-F) [Suspect]
     Indication: PANCREATIC CARCINOMA
     Dosage: 400 MG/M2; 250 MG/M2
     Dates: start: 20070702
  3. GEMCITABINE HCL [Suspect]
     Indication: PANCREATIC CARCINOMA
     Dosage: 234 MG IV; 176 MG IV
     Route: 042
     Dates: start: 20070709
  4. GEMCITABINE HCL [Suspect]
     Indication: PANCREATIC CARCINOMA
     Dosage: 234 MG IV; 176 MG IV
     Route: 042
     Dates: start: 20070716
  5. GEMCITABINE HCL [Suspect]
     Indication: PANCREATIC CARCINOMA
     Dosage: 234 MG IV; 176 MG IV
     Route: 042
     Dates: start: 20070723
  6. GEMCITABINE HCL [Suspect]
     Indication: PANCREATIC CARCINOMA
     Dosage: 234 MG IV; 176 MG IV
     Route: 042
     Dates: start: 20070730
  7. PROTONIX [Concomitant]
  8. FOSAMAX [Concomitant]
  9. METFORMIN [Concomitant]
  10. PANCREASE MT [Concomitant]
  11. MGOXIDE [Concomitant]
  12. DEXAMETHASONE 0.5MG TAB [Concomitant]

REACTIONS (4)
  - DIARRHOEA [None]
  - GASTROENTERITIS [None]
  - METABOLIC ACIDOSIS [None]
  - THROMBOCYTOPENIA [None]
